FAERS Safety Report 12323980 (Version 1)
Quarter: 2016Q2

REPORT INFORMATION
  Report Type: Report from Study
  Country: US (occurrence: US)
  Receive Date: 20160502
  Receipt Date: 20160502
  Transmission Date: 20160815
  Serious: No
  Sender: FDA-Public Use
  Company Number: US-ABBVIE-15P-163-1449992-00

PATIENT
  Age: 36 Year
  Sex: Male
  Weight: 104.42 kg

DRUGS (3)
  1. TESTOSTERONE. [Concomitant]
     Active Substance: TESTOSTERONE
     Indication: HYPOGONADISM
     Dates: start: 201507
  2. ANDROGEL [Suspect]
     Active Substance: TESTOSTERONE
     Indication: HYPOGONADISM
     Dosage: 2 PUMPS DAILY
     Route: 061
     Dates: start: 20150605, end: 20150611
  3. RESTASIS [Concomitant]
     Active Substance: CYCLOSPORINE
     Indication: DRY EYE

REACTIONS (5)
  - Hypersensitivity [Recovered/Resolved]
  - Application site warmth [Recovered/Resolved]
  - Application site pruritus [Recovered/Resolved]
  - Suicidal ideation [Recovered/Resolved]
  - Application site erythema [Recovered/Resolved]

NARRATIVE: CASE EVENT DATE: 20150605
